FAERS Safety Report 8541104-1 (Version None)
Quarter: 2012Q3

REPORT INFORMATION
  Report Type: 
  Country: None (occurrence: None)
  Receive Date: 20120726
  Receipt Date: 20110816
  Transmission Date: 20120928
  Serious: No
  Sender: FDA-Public Use
  Company Number: US-ASTRAZENECA-2011SE49289

PATIENT
  Age: 67 Year
  Sex: Female
  Weight: 77.1 kg

DRUGS (7)
  1. SEROQUEL [Suspect]
     Indication: BIPOLAR DISORDER
     Route: 048
     Dates: start: 20110401
  2. PROZAC [Concomitant]
  3. NORVASC [Concomitant]
  4. ACIPHEX [Concomitant]
  5. ALPRAZOLAM [Concomitant]
  6. NAPROXEN [Concomitant]
  7. LISINOPRIL [Concomitant]

REACTIONS (2)
  - THERAPEUTIC RESPONSE UNEXPECTED [None]
  - DRY EYE [None]
